FAERS Safety Report 21311591 (Version 1)
Quarter: 2022Q3

REPORT INFORMATION
  Report Type: Spontaneous
  Country: US (occurrence: None)
  Receive Date: 20220909
  Receipt Date: 20220909
  Transmission Date: 20221027
  Serious: Yes (Hospitalization)
  Sender: FDA-Public Use
  Company Number: None

PATIENT
  Age: 21 Year
  Sex: Male
  Weight: 110 kg

DRUGS (22)
  1. DOXORUBICIN HYDROCHLORIDE [Suspect]
     Active Substance: DOXORUBICIN HYDROCHLORIDE
     Dates: end: 20220826
  2. ONCASPAR [Suspect]
     Active Substance: PEGASPARGASE
     Dates: end: 20220826
  3. VINCRISTINE SULFATE [Suspect]
     Active Substance: VINCRISTINE SULFATE
     Dates: end: 20220826
  4. ACYCLOVIR [Concomitant]
     Active Substance: ACYCLOVIR
  5. BACTRIM DS [Concomitant]
     Active Substance: SULFAMETHOXAZOLE\TRIMETHOPRIM
  6. DEXAMETHASONE [Concomitant]
     Active Substance: DEXAMETHASONE
  7. EPINEPHRINE [Concomitant]
     Active Substance: EPINEPHRINE
  8. FAMOTIDINE [Concomitant]
     Active Substance: FAMOTIDINE
  9. FENOFIBRATE [Concomitant]
     Active Substance: FENOFIBRATE
  10. FLUCONAZOLE [Concomitant]
     Active Substance: FLUCONAZOLE
  11. GABAPENTIN [Concomitant]
     Active Substance: GABAPENTIN
  12. LORAZEPAM [Concomitant]
     Active Substance: LORAZEPAM
  13. ONDANSETRON [Concomitant]
     Active Substance: ONDANSETRON
  14. PANTOPRAZOLE [Concomitant]
     Active Substance: PANTOPRAZOLE
  15. SENNA [Concomitant]
     Active Substance: SENNA LEAF\SENNOSIDES\SENNOSIDES A AND B
  16. THIOGUANINE [Concomitant]
     Active Substance: THIOGUANINE
  17. TRAMADOL [Concomitant]
     Active Substance: TRAMADOL
  18. URSODIOL [Concomitant]
  19. ACETAMINOPHEN [Concomitant]
     Active Substance: ACETAMINOPHEN
  20. CIPROFLOXACIN [Concomitant]
     Active Substance: CIPROFLOXACIN
  21. NORCO [Concomitant]
     Active Substance: ACETAMINOPHEN\HYDROCODONE BITARTRATE
  22. PROCHLORPERAZINE [Concomitant]
     Active Substance: PROCHLORPERAZINE

REACTIONS (7)
  - Pain [None]
  - Back pain [None]
  - Arthralgia [None]
  - Arthralgia [None]
  - Pain in extremity [None]
  - Gait inability [None]
  - SARS-CoV-2 test positive [None]

NARRATIVE: CASE EVENT DATE: 20220905
